FAERS Safety Report 18956416 (Version 1)
Quarter: 2021Q1

REPORT INFORMATION
  Report Type: Other
  Country: US (occurrence: US)
  Receive Date: 20210302
  Receipt Date: 20210302
  Transmission Date: 20210420
  Serious: Yes (Other)
  Sender: FDA-Public Use
  Company Number: US-ROCHE-2773331

PATIENT
  Sex: Female

DRUGS (5)
  1. OCREVUS [Suspect]
     Active Substance: OCRELIZUMAB
     Indication: RELAPSING MULTIPLE SCLEROSIS
     Dosage: PRESCRIBED WITH INFUSE 300 MG DAY 1 AND DAY 15?DATE OF TREATMENT: 19/APR/2018, 03/MAY/2018, 25/OCT/2
     Route: 065
  2. MYRBETRIQ [Concomitant]
     Active Substance: MIRABEGRON
  3. PROVIGIL [Concomitant]
     Active Substance: MODAFINIL
  4. SONATA [Concomitant]
     Active Substance: ZALEPLON
  5. WELLBUTRIN [Concomitant]
     Active Substance: BUPROPION HYDROCHLORIDE

REACTIONS (3)
  - Intentional product use issue [Unknown]
  - Off label use [Unknown]
  - Colon cancer [Unknown]
